FAERS Safety Report 17098651 (Version 4)
Quarter: 2019Q4

REPORT INFORMATION
  Report Type: Spontaneous
  Country: DE (occurrence: DE)
  Receive Date: 20191202
  Receipt Date: 20191230
  Transmission Date: 20200122
  Serious: Yes (Hospitalization, Other)
  Sender: FDA-Public Use
  Company Number: DE-PFIZER INC-K200600345

PATIENT
  Age: 53 Year
  Sex: Female

DRUGS (4)
  1. METOPROLOL SUCCINATE. [Suspect]
     Active Substance: METOPROLOL SUCCINATE
     Dosage: 100 DF, SINGLE (9.5 MG TABLETS)
     Route: 048
  2. HYDROCHLOROTHIAZIDE. [Suspect]
     Active Substance: HYDROCHLOROTHIAZIDE
     Dosage: 20 DF, SINGLE (TABLETS, 25MG)
     Route: 048
  3. RAMIPRIL. [Suspect]
     Active Substance: RAMIPRIL
     Dosage: 20 DF, SINGLE (5MG, TABLETS)
     Route: 048
  4. METOPROLOL SUCCINATE. [Suspect]
     Active Substance: METOPROLOL SUCCINATE
     Dosage: 100 DF, SINGLE (95 MG TABLETS)
     Route: 048

REACTIONS (14)
  - Loss of consciousness [Recovered/Resolved]
  - Intentional overdose [Recovered/Resolved]
  - Cardiogenic shock [Recovered/Resolved]
  - Acute kidney injury [Recovered/Resolved]
  - Left ventricular dysfunction [Recovered/Resolved]
  - Toxicity to various agents [Recovered/Resolved]
  - Brain natriuretic peptide increased [Recovered/Resolved]
  - Suicide attempt [Recovered/Resolved]
  - Bundle branch block right [Recovered/Resolved]
  - Procalcitonin increased [Recovered/Resolved]
  - Blood pressure immeasurable [Recovered/Resolved]
  - Pneumonia [Recovered/Resolved]
  - Sinus bradycardia [Recovered/Resolved]
  - Drug level above therapeutic [Recovered/Resolved]
